FAERS Safety Report 5782570-4 (Version None)
Quarter: 2008Q2

REPORT INFORMATION
  Report Type: 
  Country: None (occurrence: None)
  Receive Date: 20080623
  Receipt Date: 20080611
  Transmission Date: 20081010
  Serious: Yes (Hospitalization)
  Sender: FDA-Public Use
  Company Number: FR-PFIZER INC-2008049822

PATIENT
  Sex: Male

DRUGS (8)
  1. LYRICA [Suspect]
     Dosage: DAILY DOSE:100MG
     Route: 048
     Dates: start: 20080217, end: 20080307
  2. AMOXICILLIN TRIHYDRATE [Suspect]
     Indication: PHARYNGITIS
     Route: 048
     Dates: start: 20080305, end: 20080310
  3. PANTOPRAZOLE SODIUM [Suspect]
     Route: 048
     Dates: start: 20080207, end: 20080307
  4. GLUCOVANCE [Suspect]
     Indication: TYPE 2 DIABETES MELLITUS
     Route: 048
  5. ENOXAPARIN SODIUM [Concomitant]
     Route: 058
  6. FENOFIBRATE [Concomitant]
     Route: 048
  7. TAMSULOSIN HCL [Concomitant]
     Route: 048
  8. CLONAZEPAM [Concomitant]
     Route: 048

REACTIONS (2)
  - LEUKOPENIA [None]
  - NEUTROPENIA [None]
